FAERS Safety Report 5285736-5 (Version None)
Quarter: 2007Q1

REPORT INFORMATION
  Report Type: 
  Country: None (occurrence: None)
  Receive Date: 20070130
  Receipt Date: 20060707
  Transmission Date: 20070707
  Serious: Yes (Death)
  Sender: FDA-Public Use
  Company Number: 2006RL000250

PATIENT

DRUGS (1)
  1. PROPAFENONE HCL [Suspect]
     Indication: NODAL ARRHYTHMIA

REACTIONS (1)
  - ARRHYTHMIA [None]
